FAERS Safety Report 7417205-8 (Version None)
Quarter: 2011Q2

REPORT INFORMATION
  Report Type: 
  Country: None (occurrence: None)
  Receive Date: 20110415
  Receipt Date: 20101018
  Transmission Date: 20111010
  Serious: Yes (Other)
  Sender: FDA-Public Use
  Company Number: US-BAYER-201027797NA

PATIENT
  Age: 22 Year
  Sex: Female
  Weight: 57.596 kg

DRUGS (5)
  1. YAZ [Suspect]
     Dosage: 5-6 SUPPLY OF SAMPLES RECEIVED
     Dates: start: 20061101, end: 20071001
  2. OCELLA [Suspect]
     Indication: PRODUCT USED FOR UNKNOWN INDICATION
     Dosage: 5-6 SUPPLY OF SAMPLES RECEIVED
     Route: 048
     Dates: start: 20081101, end: 20090901
  3. NSAID'S [Concomitant]
  4. YASMIN [Suspect]
     Indication: PRODUCT USED FOR UNKNOWN INDICATION
     Dosage: 5-6 SUPPLY OF SAMPLES RECEIVED
     Route: 048
     Dates: start: 20080701, end: 20081101
  5. CENTRUM [Concomitant]

REACTIONS (3)
  - CHOLECYSTECTOMY [None]
  - CHOLECYSTITIS [None]
  - ABDOMINAL PAIN [None]
